FAERS Safety Report 17657024 (Version 1)
Quarter: 2020Q2

REPORT INFORMATION
  Report Type: Spontaneous
  Country: US (occurrence: US)
  Receive Date: 20200410
  Receipt Date: 20200410
  Transmission Date: 20200713
  Serious: No
  Sender: FDA-Public Use
  Company Number: US-BAYER-2020-048281

PATIENT
  Age: 65 Year
  Sex: Female

DRUGS (2)
  1. AXERT [Concomitant]
     Active Substance: ALMOTRIPTAN MALATE
     Indication: MIGRAINE
  2. CLIMARA [Suspect]
     Active Substance: ESTRADIOL
     Dosage: UNK
     Route: 062
     Dates: start: 1997

REACTIONS (6)
  - Drug withdrawal syndrome [None]
  - Intentional dose omission [None]
  - Hot flush [None]
  - Back pain [None]
  - Poor quality sleep [None]
  - Migraine [None]
